FAERS Safety Report 15000657 (Version 1)
Quarter: 2018Q2

REPORT INFORMATION
  Report Type: Spontaneous
  Country: DE (occurrence: DE)
  Receive Date: 20180612
  Receipt Date: 20180612
  Transmission Date: 20180711
  Serious: Yes (Hospitalization)
  Sender: FDA-Public Use
  Company Number: DE-PFIZER INC-2018232673

PATIENT
  Age: 78 Year
  Sex: Female

DRUGS (8)
  1. METOPROLOL. [Suspect]
     Active Substance: METOPROLOL
     Dosage: 0.5 DF, 2X/DAY (47.5 MG, 0.5-0-0.5-0)
     Route: 065
  2. PRAVASTATIN. [Concomitant]
     Active Substance: PRAVASTATIN
     Dosage: 20 MG, 1X/DAY (20 MG, 0-0-1-0)
  3. LORMETAZEPAM [Suspect]
     Active Substance: LORMETAZEPAM
     Dosage: 0.5 DF, 1X/DAY (2 MG, 0-0-0.5-0)
     Route: 065
  4. VENLAFAXINE HCL [Suspect]
     Active Substance: VENLAFAXINE HYDROCHLORIDE
     Dosage: 75 MG, 2X/DAY (75 MG, 1-0-1-0)
     Route: 065
  5. ASS 100 [Concomitant]
     Active Substance: ASPIRIN
     Dosage: 100 MG, 1X/DAY (100 MG, 1-0-0-0)
  6. AMLODIPINE BESILATE [Suspect]
     Active Substance: AMLODIPINE BESYLATE
     Dosage: 5 MG, 2X/DAY (5 MG, 1-0-1-0)
     Route: 065
  7. TRIMIPRAMINE [Suspect]
     Active Substance: TRIMIPRAMINE
     Dosage: NK MG, NK, DROPS
     Route: 065
  8. SPASMEX [Concomitant]
     Dosage: 30 MG, 2X/DAY (30 MG, 1-0-1-0)

REACTIONS (3)
  - Balance disorder [Unknown]
  - Urinary incontinence [Unknown]
  - Fall [Unknown]
